FAERS Safety Report 9931463 (Version 8)
Quarter: 2014Q2

REPORT INFORMATION
  Report Type: Report from Study
  Country: DE (occurrence: DE)
  Receive Date: 20140228
  Receipt Date: 20140516
  Transmission Date: 20141212
  Serious: Yes (Other)
  Sender: FDA-Public Use
  Company Number: DE-ROCHE-1354942

PATIENT
  Age: 51 Year
  Sex: Male
  Weight: 81 kg

DRUGS (3)
  1. VISMODEGIB [Suspect]
     Indication: BASAL CELL CARCINOMA
     Dosage: LAST DOSE PRIOR TO SAE 23/JAN/2014.
     Route: 048
     Dates: start: 20130515, end: 20140123
  2. MAGNESIUM CITRATE [Concomitant]
     Route: 065
     Dates: start: 20130625
  3. ECURAL [Concomitant]
     Route: 065
     Dates: start: 20130612, end: 20130708

REACTIONS (1)
  - Squamous cell carcinoma [Not Recovered/Not Resolved]
